FAERS Safety Report 13259863 (Version 1)
Quarter: 2017Q1

REPORT INFORMATION
  Report Type: Spontaneous
  Country: AR (occurrence: AR)
  Receive Date: 20170222
  Receipt Date: 20170222
  Transmission Date: 20170428
  Serious: Yes (Hospitalization)
  Sender: FDA-Public Use
  Company Number: AR-PFIZER INC-2017078123

PATIENT
  Age: 11 Year
  Sex: Male

DRUGS (1)
  1. IBUPIRAC [Suspect]
     Active Substance: IBUPROFEN

REACTIONS (5)
  - Swollen tongue [Unknown]
  - Bronchial obstruction [Unknown]
  - Pharyngeal oedema [Unknown]
  - Oral pruritus [Unknown]
  - Mouth swelling [Unknown]
